FAERS Safety Report 4970280-2 (Version None)
Quarter: 2006Q1

REPORT INFORMATION
  Report Type: 
  Country: None (occurrence: None)
  Receive Date: 20060331
  Receipt Date: 20060116
  Transmission Date: 20060701
  Serious: Yes (Life-Threatening, Hospitalization)
  Sender: FDA-Public Use
  Company Number: 2006BH000760

PATIENT
  Age: 6 Year
  Sex: Female
  Weight: 22 kg

DRUGS (5)
  1. ENDOBULIN/IVEEGAM S/D (IMMUNOGLOBULIN HUMAN NORMAL) [Suspect]
     Indication: SPLENECTOMY
     Dosage: IV
     Route: 042
     Dates: start: 20060103, end: 20060103
  2. ENDOBULIN/IVEEGAM S/D (IMMUNOGLOBULIN HUMAN NORMAL) [Suspect]
     Indication: THROMBOCYTOPENIA
     Dosage: IV
     Route: 042
     Dates: start: 20060103, end: 20060103
  3. THYM-UVOCAL [Concomitant]
  4. STEROIDS [Concomitant]
  5. GAMMAGLOBULINS [Concomitant]

REACTIONS (7)
  - ANAEMIA [None]
  - CHILLS [None]
  - DYSPNOEA [None]
  - HAEMOGLOBINURIA [None]
  - PYREXIA [None]
  - TREMOR [None]
  - VOMITING [None]
